FAERS Safety Report 21848299 (Version 1)
Quarter: 2023Q1

REPORT INFORMATION
  Report Type: Spontaneous
  Country: GB (occurrence: GB)
  Receive Date: 20230111
  Receipt Date: 20230111
  Transmission Date: 20230417
  Serious: Yes (Other)
  Sender: FDA-Public Use
  Company Number: GB-MHRA-MED-202301081640505950-MBPYZ

PATIENT
  Sex: Female
  Weight: 66 kg

DRUGS (2)
  1. PROVERA [Suspect]
     Active Substance: MEDROXYPROGESTERONE ACETATE
     Indication: Hormone replacement therapy
     Dosage: 10MG ONCE A DAY, 14 DAYS IN EVERY 28 DAY CYCLE; ;
     Dates: start: 202209, end: 202212
  2. ESTRADIOL [Suspect]
     Active Substance: ESTRADIOL
     Indication: Hormone replacement therapy
     Dates: start: 202112

REACTIONS (6)
  - Fatigue [Recovering/Resolving]
  - Nausea [Recovered/Resolved]
  - Cluster headache [Recovered/Resolved]
  - Dizziness [Recovered/Resolved]
  - Histamine level increased [Unknown]
  - Seasonal allergy [Unknown]

NARRATIVE: CASE EVENT DATE: 20220901
